FAERS Safety Report 11889786 (Version 2)
Quarter: 2016Q1

REPORT INFORMATION
  Report Type: Spontaneous
  Country: DE (occurrence: DE)
  Receive Date: 20160105
  Receipt Date: 20160304
  Transmission Date: 20160526
  Serious: Yes (Other)
  Sender: FDA-Public Use
  Company Number: DE-UCBSA-2015043391

PATIENT
  Sex: Female

DRUGS (4)
  1. LEVETIRACETAM UCB [Suspect]
     Active Substance: LEVETIRACETAM
     Dosage: 1500 MG, DAILY
     Route: 048
     Dates: start: 2015, end: 2015
  2. LEVETIRACETAM UCB [Suspect]
     Active Substance: LEVETIRACETAM
     Dosage: 750-500-750 MG (2000 DAILY)
     Route: 048
     Dates: start: 2015, end: 2015
  3. LEVETIRACETAM UCB [Suspect]
     Active Substance: LEVETIRACETAM
     Indication: SEIZURE
     Dosage: 500 MG, UNK
     Route: 048
  4. VIMPAT [Suspect]
     Active Substance: LACOSAMIDE
     Indication: SEIZURE
     Dosage: 75-0-100;2X/DAY (BID)
     Route: 048

REACTIONS (2)
  - Off label use [Unknown]
  - Seizure [Recovered/Resolved]

NARRATIVE: CASE EVENT DATE: 2015
